FAERS Safety Report 6425455-2 (Version None)
Quarter: 2009Q4

REPORT INFORMATION
  Report Type: 
  Country: None (occurrence: None)
  Receive Date: 20091029
  Receipt Date: 20091015
  Transmission Date: 20100525
  Serious: Yes (Life-Threatening, Hospitalization, Other)
  Sender: FDA-Public Use
  Company Number: CERZ-1000978

PATIENT
  Age: 19 Year
  Sex: Female
  Weight: 56.8 kg

DRUGS (5)
  1. CEREZYME [Suspect]
     Indication: GAUCHER'S DISEASE
     Dosage: 50 U, Q2W, INTRAVENOUS
     Route: 042
     Dates: start: 19990101, end: 20090701
  2. CEREZYME [Suspect]
  3. CYMBALTA [Suspect]
     Indication: DRUG USE FOR UNKNOWN INDICATION
     Dosage: 60 MG
     Dates: end: 20091014
  4. WELLBUTRIN XL [Suspect]
     Indication: DRUG USE FOR UNKNOWN INDICATION
     Dosage: 300 MG, QD
     Dates: end: 20091014
  5. TOPAMAX [Suspect]
     Indication: DRUG USE FOR UNKNOWN INDICATION
     Dosage: 150 MG,QD
     Dates: end: 20091014

REACTIONS (4)
  - ANAEMIA HAEMOLYTIC AUTOIMMUNE [None]
  - AUTOIMMUNE THROMBOCYTOPENIA [None]
  - HEART RATE DECREASED [None]
  - PANCYTOPENIA [None]
